FAERS Safety Report 4986962-2 (Version None)
Quarter: 2006Q2

REPORT INFORMATION
  Report Type: 
  Country: None (occurrence: None)
  Receive Date: 20060428
  Receipt Date: 20060428
  Transmission Date: 20061013
  Serious: Yes (Life-Threatening, Hospitalization, Disabling, Other)
  Sender: FDA-Public Use
  Company Number: None

PATIENT
  Sex: Female
  Weight: 74.8435 kg

DRUGS (1)
  1. NUVARING [Suspect]
     Indication: CONTRACEPTION
     Dosage: 1 EVERY 3 WEEKS VAG
     Dates: start: 20030217, end: 20030604

REACTIONS (7)
  - DEEP VEIN THROMBOSIS [None]
  - LIMB INJURY [None]
  - PAIN [None]
  - POOR PERIPHERAL CIRCULATION [None]
  - POST THROMBOTIC SYNDROME [None]
  - PULMONARY EMBOLISM [None]
  - THROMBOSIS [None]
